FAERS Safety Report 11431220 (Version 1)
Quarter: 2015Q3

REPORT INFORMATION
  Report Type: Spontaneous
  Country: US (occurrence: US)
  Receive Date: 20150828
  Receipt Date: 20150828
  Transmission Date: 20151125
  Serious: Yes (Hospitalization, Disabling)
  Sender: FDA-Public Use
  Company Number: US-PFIZER INC-8-94356-001W

PATIENT
  Age: 37 Year
  Sex: Female

DRUGS (1)
  1. DOXYCYCLINE HYCLATE. [Suspect]
     Active Substance: DOXYCYCLINE HYCLATE
     Indication: ROCKY MOUNTAIN SPOTTED FEVER
     Dosage: 200 MG DAILY
     Route: 048

REACTIONS (3)
  - Cholestasis [Recovered/Resolved]
  - Gastrointestinal disorder [Recovered/Resolved]
  - Pruritus [Recovered/Resolved]
